FAERS Safety Report 21305606 (Version 1)
Quarter: 2022Q3

REPORT INFORMATION
  Report Type: Spontaneous
  Country: JP (occurrence: JP)
  Receive Date: 20220908
  Receipt Date: 20220908
  Transmission Date: 20221027
  Serious: Yes (Other)
  Sender: FDA-Public Use
  Company Number: JP-AMGEN-JPNSP2022106465

PATIENT
  Age: 69 Year
  Sex: Female
  Weight: 52 kg

DRUGS (2)
  1. BLINCYTO [Suspect]
     Active Substance: BLINATUMOMAB
     Indication: B precursor type acute leukaemia
     Dosage: 27 MICROGRAM,24HR DIV
     Route: 041
  2. BLINCYTO [Suspect]
     Active Substance: BLINATUMOMAB
     Dosage: 9 MICROGRAM,24HR DIV
     Route: 041

REACTIONS (7)
  - Hypotension [Recovered/Resolved]
  - Nervous system disorder [Recovered/Resolved]
  - Abdominal pain [Recovered/Resolved]
  - Dysgraphia [Recovered/Resolved]
  - Tremor [Recovered/Resolved]
  - Dizziness [Recovered/Resolved]
  - Neutrophil count decreased [Recovered/Resolved]
